FAERS Safety Report 16223315 (Version 1)
Quarter: 2019Q2

REPORT INFORMATION
  Report Type: Spontaneous
  Country: US (occurrence: US)
  Receive Date: 20190420
  Receipt Date: 20190420
  Transmission Date: 20190711
  Serious: Yes (Death, Hospitalization)
  Sender: FDA-Public Use
  Company Number: None

PATIENT
  Age: 77 Year
  Sex: Female
  Weight: 72 kg

DRUGS (3)
  1. ALLOPURINOL. [Concomitant]
     Active Substance: ALLOPURINOL
  2. LOSARTAN 100MG TAB [Suspect]
     Active Substance: LOSARTAN
     Indication: HYPERTENSION
     Dosage: ?          QUANTITY:1 TABLET(S);?
     Route: 048
     Dates: start: 20140319, end: 20190418
  3. GLIMEPRIDE [Concomitant]
     Active Substance: GLIMEPIRIDE

REACTIONS (3)
  - Asthenia [None]
  - Neoplasm malignant [None]
  - Weight decreased [None]

NARRATIVE: CASE EVENT DATE: 20180301
